FAERS Safety Report 8990062 (Version 2)
Quarter: 2013Q1

REPORT INFORMATION
  Report Type: Spontaneous
  Country: TR (occurrence: TR)
  Receive Date: 20121228
  Receipt Date: 20130204
  Transmission Date: 20140127
  Serious: Yes (Hospitalization, Other)
  Sender: FDA-Public Use
  Company Number: PHHY2012TR120617

PATIENT
  Sex: 0

DRUGS (2)
  1. NIMESULIDE [Suspect]
  2. NAPROXEN SODIUM [Suspect]

REACTIONS (3)
  - Suicide attempt [Unknown]
  - Hypertension [Unknown]
  - Overdose [Unknown]
